FAERS Safety Report 6158916-4 (Version None)
Quarter: 2009Q2

REPORT INFORMATION
  Report Type: 
  Country: None (occurrence: None)
  Receive Date: 20090417
  Receipt Date: 20090406
  Transmission Date: 20091009
  Serious: Yes (Death)
  Sender: FDA-Public Use
  Company Number: NSADSS2001022028

PATIENT
  Sex: Male

DRUGS (3)
  1. REMICADE [Suspect]
     Route: 041
     Dates: start: 20000922
  2. REMICADE [Suspect]
     Indication: COLITIS ULCERATIVE
     Route: 041
     Dates: start: 20000922
  3. GLUCOCORTICOSTEROIDS [Concomitant]

REACTIONS (4)
  - DRUG INEFFECTIVE [None]
  - PNEUMOTHORAX [None]
  - PULMONARY EMBOLISM [None]
  - RESPIRATORY DEPRESSION [None]
